FAERS Safety Report 5205243-5 (Version None)
Quarter: 2007Q1

REPORT INFORMATION
  Report Type: 
  Country: None (occurrence: None)
  Receive Date: 20070110
  Receipt Date: 20061230
  Transmission Date: 20070707
  Serious: Yes (Other)
  Sender: FDA-Public Use
  Company Number: US-PFIZER INC-2007001124

PATIENT
  Sex: Female
  Weight: 51.7 kg

DRUGS (8)
  1. CHANTIX [Suspect]
     Indication: SMOKING CESSATION THERAPY
  2. ALPRAZOLAM [Interacting]
     Indication: ANXIETY
  3. ALPRAZOLAM [Interacting]
     Indication: PANIC DISORDER
  4. VERAPAMIL [Concomitant]
  5. ZETIA [Concomitant]
  6. ACIPHEX [Concomitant]
  7. HERBAL PREPARATION [Concomitant]
  8. FIORICET [Concomitant]

REACTIONS (16)
  - ABNORMAL DREAMS [None]
  - ANGINA PECTORIS [None]
  - BREAST PAIN [None]
  - BREAST SWELLING [None]
  - DIARRHOEA [None]
  - DRUG INTERACTION [None]
  - DYSPNOEA [None]
  - HEADACHE [None]
  - HYPOAESTHESIA [None]
  - INSOMNIA [None]
  - MICTURITION URGENCY [None]
  - MIDDLE INSOMNIA [None]
  - MUSCLE SPASMS [None]
  - PAIN [None]
  - PALPITATIONS [None]
  - VOMITING [None]
